FAERS Safety Report 4502240-X (Version None)
Quarter: 2004Q4

REPORT INFORMATION
  Report Type: 
  Country: None (occurrence: None)
  Receive Date: 20041116
  Receipt Date: 20041006
  Transmission Date: 20050328
  Serious: Yes (Life-Threatening, Hospitalization, Other)
  Sender: FDA-Public Use
  Company Number: BE-BRISTOL-MYERS SQUIBB COMPANY-12722864

PATIENT
  Age: 19 Year
  Sex: Female
  Weight: 42 kg

DRUGS (11)
  1. EFAVIRENZ [Suspect]
     Indication: HIV INFECTION
     Dosage: STOPPED 20-APR-2003, RESTARTED 17-AUG-2003 AT 600 MG DAILY
     Route: 048
     Dates: end: 20030824
  2. STAVUDINE [Suspect]
     Indication: HIV INFECTION
     Dates: start: 20030817, end: 20030826
  3. LAMIVUDINE [Suspect]
     Indication: HIV INFECTION
     Dosage: THERAPY WAS DISCONTINUED ON 20-APR-2003 AND RESTARTED AT 150 MG TWICE DAILY ON 17-AUG-2003.
     Dates: end: 20030826
  4. ZIDOVUDINE [Suspect]
     Indication: HIV INFECTION
     Dates: end: 20030420
  5. ISONIAZID [Suspect]
     Indication: TUBERCULOSIS
     Dates: start: 20030403, end: 20030420
  6. MYAMBUTOL [Suspect]
     Indication: TUBERCULOSIS
     Dates: start: 20030403, end: 20030420
  7. PYRAZINAMIDE [Suspect]
     Indication: TUBERCULOSIS
     Dates: start: 20030403, end: 20030420
  8. RIFAMPICIN [Suspect]
     Indication: TUBERCULOSIS
     Dates: start: 20030403, end: 20030420
  9. CO-TRIMOXAZOLE [Suspect]
     Indication: PROPHYLAXIS
     Dates: end: 20030420
  10. DAPSONE [Concomitant]
     Dates: start: 20030723
  11. COMBIVIR [Concomitant]
     Dates: start: 20030724

REACTIONS (5)
  - DYSURIA [None]
  - STEVENS-JOHNSON SYNDROME [None]
  - TRISMUS [None]
  - VAGINAL DISCHARGE [None]
  - WEIGHT DECREASED [None]
